FAERS Safety Report 14957287 (Version 2)
Quarter: 2021Q4

REPORT INFORMATION
  Report Type: Other
  Country: CA (occurrence: CA)
  Receive Date: 20180531
  Receipt Date: 20211006
  Transmission Date: 20220303
  Serious: Yes (Other)
  Sender: FDA-Public Use
  Company Number: CA-APOTEX-2018AP014010

PATIENT
  Age: 46 Year
  Sex: Male
  Weight: 72 kg

DRUGS (21)
  1. MOXIFLOXACIN [Interacting]
     Active Substance: MOXIFLOXACIN
     Indication: Pulmonary tuberculosis
     Dosage: 600 MILLIGRAM
     Route: 065
  2. MOXIFLOXACIN [Interacting]
     Active Substance: MOXIFLOXACIN
     Dosage: 8.2 MILLIGRAM/KILOGRAM
     Route: 065
  3. MOXIFLOXACIN [Interacting]
     Active Substance: MOXIFLOXACIN
     Dosage: 9.2 MILLIGRAM/KILOGRAM
     Route: 065
  4. ETHAMBUTOL [Interacting]
     Active Substance: ETHAMBUTOL HYDROCHLORIDE
     Indication: Pulmonary tuberculosis
     Dosage: 1600 MILLIGRAM
     Route: 065
  5. ETHAMBUTOL [Interacting]
     Active Substance: ETHAMBUTOL HYDROCHLORIDE
     Dosage: 1400 MILLIGRAM
     Route: 065
  6. ETHAMBUTOL [Interacting]
     Active Substance: ETHAMBUTOL HYDROCHLORIDE
     Dosage: 1200 MILLIGRAM
     Route: 065
  7. ETHAMBUTOL [Interacting]
     Active Substance: ETHAMBUTOL HYDROCHLORIDE
     Dosage: 1000 MILLIGRAM
     Route: 065
  8. ISONIAZID [Interacting]
     Active Substance: ISONIAZID
     Indication: Pulmonary tuberculosis
     Dosage: 300 MILLIGRAM
     Route: 065
  9. ISONIAZID [Interacting]
     Active Substance: ISONIAZID
     Dosage: 450 MILLIGRAM
     Route: 065
  10. PYRAZINAMIDE [Interacting]
     Active Substance: PYRAZINAMIDE
     Indication: Pulmonary tuberculosis
     Dosage: 1800 MILLIGRAM
     Route: 065
  11. RIFAMPIN [Interacting]
     Active Substance: RIFAMPIN
     Indication: Pulmonary tuberculosis
     Dosage: 1500 MILLIGRAM
     Route: 065
  12. RIFAMPIN [Interacting]
     Active Substance: RIFAMPIN
     Dosage: 750 MILLIGRAM
     Route: 065
  13. RIFAMPIN [Interacting]
     Active Substance: RIFAMPIN
     Dosage: 600 MILLIGRAM
     Route: 065
  14. EFAVIRENZ [Interacting]
     Active Substance: EFAVIRENZ
     Indication: HIV infection
     Dosage: 800 MILLIGRAM
     Route: 065
  15. EFAVIRENZ [Interacting]
     Active Substance: EFAVIRENZ
     Dosage: 600 MILLIGRAM
     Route: 065
  16. RIFAMPIN [Interacting]
     Active Substance: RIFAMPIN
     Indication: Pulmonary tuberculosis
     Dosage: 750 MILLIGRAM
     Route: 065
  17. RIFAMPIN [Interacting]
     Active Substance: RIFAMPIN
     Dosage: 600 MILLIGRAM
     Route: 065
  18. EMTRICITABINE [Concomitant]
     Active Substance: EMTRICITABINE
     Indication: HIV infection
     Dosage: 200 MILLIGRAM
     Route: 065
  19. TENOFOVIR [Concomitant]
     Active Substance: TENOFOVIR
     Indication: HIV infection
     Dosage: 300 MILLIGRAM
     Route: 065
  20. EFAVIRENZ [Concomitant]
     Active Substance: EFAVIRENZ
     Indication: Product used for unknown indication
     Dosage: 600 MILLIGRAM
     Route: 065
  21. EFAVIRENZ [Concomitant]
     Active Substance: EFAVIRENZ
     Dosage: 800 MILLIGRAM
     Route: 065

REACTIONS (3)
  - Drug interaction [Unknown]
  - Hepatotoxicity [Unknown]
  - Transaminases increased [Unknown]
